FAERS Safety Report 7907100-X (Version None)
Quarter: 2011Q4

REPORT INFORMATION
  Report Type: 
  Country: None (occurrence: None)
  Receive Date: 20111110
  Receipt Date: 20110909
  Transmission Date: 20120403
  Serious: Yes (Other)
  Sender: FDA-Public Use
  Company Number: US-ASTRAZENECA-2011SE54537

PATIENT
  Age: 81 Year
  Sex: Female

DRUGS (18)
  1. ATENOLOL [Concomitant]
     Route: 048
  2. HYDROCHLOROTHIAZIDE [Concomitant]
     Dosage: 12.5 ONE CAPSULE DAILY
     Route: 048
  3. COMBIVENT [Concomitant]
     Dosage: 103-18 MCG/ACT TWO PUFFS INHALATION AS NEEDED
     Route: 055
  4. PRILOSEC [Suspect]
     Route: 048
  5. CRESTOR [Concomitant]
     Route: 048
  6. FLONASE [Concomitant]
     Dosage: 50 MCG/ACT SUSPENSION ONEPUFF IN EACH NOSTRIL TWICE A DAY AS NEEDED
     Route: 045
  7. PLAVIX [Concomitant]
     Route: 048
  8. CELEXA [Concomitant]
     Route: 048
  9. MUCINEX [Concomitant]
     Indication: PULMONARY CONGESTION
     Dosage: 600 MG EVERY 12 HRS
     Route: 048
  10. LISINOPRIL [Suspect]
     Route: 048
  11. DETROL LA [Concomitant]
     Route: 048
  12. CENTRUM SILVER [Concomitant]
     Route: 048
  13. OSCAL [Concomitant]
     Dosage: 500/200 D 3 TWO TABLETS ONCE A DAY
     Route: 048
  14. ASPIRIN [Concomitant]
     Route: 048
  15. ZYRTEC [Concomitant]
     Route: 048
  16. LORTAB [Concomitant]
     Indication: PAIN
     Dosage: 5-500 MG AS NEEDED EVERY 8 HRS
     Route: 048
  17. PREVACID [Concomitant]
     Dosage: ONE CAPSULE BEFORE MEAL DAILY
     Route: 048
  18. ATIVAN [Concomitant]
     Route: 048

REACTIONS (3)
  - DRUG HYPERSENSITIVITY [None]
  - DRUG INTOLERANCE [None]
  - ANGIOEDEMA [None]
